FAERS Safety Report 9720641 (Version 2)
Quarter: 2013Q4

REPORT INFORMATION
  Report Type: Report from Study
  Country: NL (occurrence: NL)
  Receive Date: 20131129
  Receipt Date: 20131209
  Transmission Date: 20140711
  Serious: Yes (Hospitalization)
  Sender: FDA-Public Use
  Company Number: PHHY2013NL137465

PATIENT
  Age: 67 Year
  Sex: Male

DRUGS (4)
  1. ZOMETA [Suspect]
     Indication: PROSTATE CANCER METASTATIC
     Dosage: 4 MG PER 100ML ONCE EVERY 6 WEEKS
  2. ZOMETA [Suspect]
     Dosage: 4 MG PER 100ML ONCE PER 6 WEEKS
     Dates: start: 20120823
  3. ZOMETA [Suspect]
     Dosage: 4 MG PER 100ML ONCE PER 6 WEEKS
     Dates: start: 20131014
  4. ZOMETA [Suspect]
     Dosage: 4 MG PER 100ML ONCE PER 6 WEEKS
     Dates: start: 20131125

REACTIONS (2)
  - Cystitis noninfective [Recovered/Resolved]
  - Pulmonary oedema [Unknown]
